FAERS Safety Report 19500521 (Version 2)
Quarter: 2021Q4

REPORT INFORMATION
  Report Type: Report from Study
  Country: US (occurrence: US)
  Receive Date: 20210707
  Receipt Date: 20211020
  Transmission Date: 20220303
  Serious: No
  Sender: FDA-Public Use
  Company Number: US-TAKEDA-2021TUS041613

PATIENT
  Age: 77 Year
  Sex: Female
  Weight: 58.33 kg

DRUGS (1)
  1. BRIGATINIB [Suspect]
     Active Substance: BRIGATINIB
     Indication: Lung neoplasm malignant
     Dosage: 180 MILLIGRAM, QD
     Route: 048
     Dates: start: 20210622

REACTIONS (2)
  - Drug intolerance [Unknown]
  - Nausea [Unknown]

NARRATIVE: CASE EVENT DATE: 20210601
